FAERS Safety Report 12161768 (Version 1)
Quarter: 2016Q1

REPORT INFORMATION
  Report Type: Spontaneous
  Country: US (occurrence: US)
  Receive Date: 20160309
  Receipt Date: 20160309
  Transmission Date: 20160526
  Serious: No
  Sender: FDA-Public Use
  Company Number: US-SUN PHARMACEUTICAL INDUSTRIES LTD-2015US-94187

PATIENT
  Sex: Female
  Weight: 82 kg

DRUGS (2)
  1. LYRICA [Suspect]
     Active Substance: PREGABALIN
     Indication: CARPAL TUNNEL SYNDROME
     Dosage: UNK
     Route: 065
     Dates: start: 201501
  2. VALACYCLOVIR [Suspect]
     Active Substance: VALACYCLOVIR HYDROCHLORIDE
     Indication: HERPES ZOSTER
     Dosage: UNK
     Route: 065

REACTIONS (1)
  - Pain [Unknown]
